FAERS Safety Report 9286008 (Version 1)
Quarter: 2013Q2

REPORT INFORMATION
  Report Type: Spontaneous
  Country: US (occurrence: US)
  Receive Date: 20130513
  Receipt Date: 20130513
  Transmission Date: 20140414
  Serious: Yes (Death, Hospitalization, Other)
  Sender: FDA-Public Use
  Company Number: US-BAXTER-2013BAX017450

PATIENT
  Age: 3 Year
  Sex: Female

DRUGS (2)
  1. 5% DEXTROSE INJECTION USP [Suspect]
     Indication: PNEUMONIA STREPTOCOCCAL
     Dosage: 35 ML/KG
     Route: 042
  2. CEFTRIAXONE INJECTION, USP (IN DEXTROSE) [Concomitant]
     Indication: PNEUMONIA STREPTOCOCCAL
     Route: 042

REACTIONS (6)
  - Apnoea [Unknown]
  - Brain oedema [Fatal]
  - Fluid overload [Fatal]
  - Pupils unequal [None]
  - Brain death [None]
  - Brain oedema [None]
